FAERS Safety Report 10912232 (Version 8)
Quarter: 2015Q2

REPORT INFORMATION
  Report Type: Spontaneous
  Country: US (occurrence: US)
  Receive Date: 20150313
  Receipt Date: 20150612
  Transmission Date: 20150821
  Serious: Yes (Hospitalization, Other)
  Sender: FDA-Public Use
  Company Number: US-009507513-1109USA00863

PATIENT
  Sex: Female

DRUGS (4)
  1. FOSAMAX [Suspect]
     Active Substance: ALENDRONATE SODIUM
     Indication: BONE DENSITY DECREASED
     Dosage: 70 MG, QW
     Route: 048
     Dates: start: 20030207, end: 20071004
  2. BONIVA [Suspect]
     Active Substance: IBANDRONATE SODIUM
     Indication: BONE DENSITY DECREASED
     Dosage: 3 MG INJECTION
     Dates: start: 20080527, end: 20100709
  3. ALENDRONATE SODIUM. [Suspect]
     Active Substance: ALENDRONATE SODIUM
     Dosage: 70 MG, UNK
     Route: 048
     Dates: start: 20050227, end: 20081008
  4. ALENDRONATE SODIUM. [Suspect]
     Active Substance: ALENDRONATE SODIUM
     Indication: BONE DENSITY DECREASED
     Dosage: 70 MG, QM
     Route: 048
     Dates: start: 20080227, end: 20081008

REACTIONS (47)
  - Femur fracture [Recovered/Resolved]
  - Hip arthroplasty [Unknown]
  - Muscle strain [Unknown]
  - Facial bones fracture [Unknown]
  - Adverse event [Not Recovered/Not Resolved]
  - Rotator cuff syndrome [Not Recovered/Not Resolved]
  - Vomiting [Unknown]
  - Electrocardiogram abnormal [Unknown]
  - QRS axis abnormal [Unknown]
  - Arthritis [Unknown]
  - Deep vein thrombosis [Unknown]
  - Scoliosis [Unknown]
  - Dystrophic calcification [Unknown]
  - Musculoskeletal pain [Unknown]
  - Femur fracture [Recovered/Resolved]
  - Fall [Unknown]
  - Bronchitis [Unknown]
  - Fall [Unknown]
  - Bone cyst [Unknown]
  - Hernia [Unknown]
  - Fractured sacrum [Unknown]
  - Arteriosclerosis [Unknown]
  - Hypercholesterolaemia [Not Recovered/Not Resolved]
  - Intramedullary rod insertion [Unknown]
  - Osteoporosis [Not Recovered/Not Resolved]
  - Coronary artery disease [Unknown]
  - Peripheral venous disease [Unknown]
  - Arthritis [Unknown]
  - Intramedullary rod insertion [Unknown]
  - Cardiac failure congestive [Unknown]
  - Osteopenia [Unknown]
  - Hypokalaemia [Unknown]
  - Deep vein thrombosis [Unknown]
  - Facial bones fracture [Unknown]
  - Anaemia postoperative [Unknown]
  - Bursitis [Unknown]
  - Pubis fracture [Recovering/Resolving]
  - Osteoarthritis [Unknown]
  - Hypertension [Not Recovered/Not Resolved]
  - Urinary tract infection [Unknown]
  - Back pain [Unknown]
  - Bone disorder [Unknown]
  - Foot fracture [Unknown]
  - Spinal osteoarthritis [Unknown]
  - Lumbar spinal stenosis [Unknown]
  - Appendicectomy [Unknown]
  - Laceration [Unknown]

NARRATIVE: CASE EVENT DATE: 2007
